FAERS Safety Report 9470865 (Version 1)
Quarter: 2013Q3

REPORT INFORMATION
  Report Type: Report from Study
  Country: AR (occurrence: AR)
  Receive Date: 20130822
  Receipt Date: 20130822
  Transmission Date: 20140515
  Serious: Yes (Other)
  Sender: FDA-Public Use
  Company Number: PHHY2013AR090953

PATIENT
  Sex: Female

DRUGS (1)
  1. EXFORGE [Suspect]
     Indication: BLOOD PRESSURE
     Dosage: 1 DF, DAILY
     Route: 048
     Dates: end: 2011

REACTIONS (3)
  - Coagulation time shortened [Unknown]
  - Mouth haemorrhage [Unknown]
  - Visual impairment [Unknown]
